FAERS Safety Report 20042581 (Version 3)
Quarter: 2024Q3

REPORT INFORMATION
  Report Type: Report from Study
  Country: CA (occurrence: None)
  Receive Date: 20211108
  Receipt Date: 20240925
  Transmission Date: 20241016
  Serious: Yes (Hospitalization, Other)
  Sender: ORION
  Company Number: CA-Orion Corporation ORION PHARMA-TREX2019-4323

PATIENT
  Age: 51 Year
  Sex: Male

DRUGS (22)
  1. METHOTREXATE [Suspect]
     Active Substance: METHOTREXATE
     Indication: Product used for unknown indication
  2. MORPHINE SULFATE [Suspect]
     Active Substance: MORPHINE SULFATE
     Indication: Product used for unknown indication
  3. COSENTYX [Suspect]
     Active Substance: SECUKINUMAB
     Indication: Ankylosing spondylitis
  4. COSENTYX [Suspect]
     Active Substance: SECUKINUMAB
     Indication: Psoriatic arthropathy
  5. COSENTYX [Suspect]
     Active Substance: SECUKINUMAB
  6. COSENTYX [Suspect]
     Active Substance: SECUKINUMAB
  7. COSENTYX [Suspect]
     Active Substance: SECUKINUMAB
  8. COSENTYX [Suspect]
     Active Substance: SECUKINUMAB
  9. ENBREL [Concomitant]
     Active Substance: ETANERCEPT
  10. HUMIRA [Concomitant]
     Active Substance: ADALIMUMAB
  11. HUMIRA [Concomitant]
     Active Substance: ADALIMUMAB
  12. NAPROXEN [Concomitant]
     Active Substance: NAPROXEN
  13. NAPROXEN [Concomitant]
     Active Substance: NAPROXEN
  14. NAPROXEN SODIUM\PSEUDOEPHEDRINE HYDROCHLORIDE [Concomitant]
     Active Substance: NAPROXEN SODIUM\PSEUDOEPHEDRINE HYDROCHLORIDE
  15. PREDNISONE [Concomitant]
     Active Substance: PREDNISONE
  16. REMICADE [Concomitant]
     Active Substance: INFLIXIMAB
  17. SIMPONI [Concomitant]
     Active Substance: GOLIMUMAB
  18. SIMPONI [Concomitant]
     Active Substance: GOLIMUMAB
  19. TYLENOL [Concomitant]
     Active Substance: ACETAMINOPHEN
  20. IBUPROFEN [Concomitant]
     Active Substance: IBUPROFEN
  21. INFLIXIMAB [Concomitant]
     Active Substance: INFLIXIMAB
  22. INFLECTRA [Concomitant]
     Active Substance: INFLIXIMAB-DYYB

REACTIONS (16)
  - Drug ineffective [Unknown]
  - Inappropriate schedule of product administration [Unknown]
  - Pneumonia [Unknown]
  - Ankylosing spondylitis [Unknown]
  - Arthralgia [Unknown]
  - Back pain [Unknown]
  - Discomfort [Unknown]
  - Dysstasia [Unknown]
  - Fatigue [Unknown]
  - Gait disturbance [Unknown]
  - General physical health deterioration [Unknown]
  - Joint swelling [Unknown]
  - Musculoskeletal stiffness [Unknown]
  - Pain [Unknown]
  - Tenderness [Unknown]
  - Psoriatic arthropathy [Unknown]
